FAERS Safety Report 20004301 (Version 1)
Quarter: 2021Q4

REPORT INFORMATION
  Report Type: Spontaneous
  Country: US (occurrence: US)
  Receive Date: 20211028
  Receipt Date: 20211028
  Transmission Date: 20220303
  Serious: No
  Sender: FDA-Public Use
  Company Number: US-JNJFOC-20210958361

PATIENT
  Sex: Female
  Weight: 55.84 kg

DRUGS (3)
  1. INVEGA SUSTENNA [Suspect]
     Active Substance: PALIPERIDONE PALMITATE
     Indication: Product used for unknown indication
     Route: 030
  2. INVEGA SUSTENNA [Suspect]
     Active Substance: PALIPERIDONE PALMITATE
  3. INVEGA SUSTENNA [Suspect]
     Active Substance: PALIPERIDONE PALMITATE

REACTIONS (7)
  - Dysarthria [Unknown]
  - Pain in extremity [Unknown]
  - Restlessness [Unknown]
  - Dyskinesia [Unknown]
  - Frustration tolerance decreased [Unknown]
  - Weight decreased [Unknown]
  - Hypophagia [Unknown]
